FAERS Safety Report 4355884-2 (Version None)
Quarter: 2004Q2

REPORT INFORMATION
  Report Type: 
  Country: None (occurrence: None)
  Receive Date: 20040505
  Receipt Date: 20040423
  Transmission Date: 20050107
  Serious: Yes (Other)
  Sender: FDA-Public Use
  Company Number: HQWYE575923APR04

PATIENT
  Age: 28 Year
  Sex: Female

DRUGS (4)
  1. ADVIL [Suspect]
     Indication: PAIN
     Dosage: SEE IMAGE
     Route: 048
     Dates: start: 20040401, end: 20040401
  2. ADVIL [Suspect]
     Indication: PAIN
     Dosage: SEE IMAGE
     Route: 048
     Dates: start: 20040422, end: 20040422
  3. THYROXINE ^COX^ (LEVOTHYROXINE SODIUM) [Concomitant]
  4. NORIMIN (ETHINYLESTRADIOL/NORETHISTERONE) [Concomitant]

REACTIONS (5)
  - FACE OEDEMA [None]
  - OROPHARYNGEAL SWELLING [None]
  - PARAESTHESIA ORAL [None]
  - PRURITUS [None]
  - URTICARIA [None]
